FAERS Safety Report 7477856-1 (Version None)
Quarter: 2011Q2

REPORT INFORMATION
  Report Type: 
  Country: None (occurrence: None)
  Receive Date: 20110513
  Receipt Date: 20110429
  Transmission Date: 20111010
  Serious: Yes (Other)
  Sender: FDA-Public Use
  Company Number: US-BAYER-2011-038464

PATIENT
  Age: 54 Year
  Sex: Female
  Weight: 78 kg

DRUGS (12)
  1. PROAIR HFA [Suspect]
     Indication: ASTHMA
     Dosage: 2 DF, BID
     Route: 055
  2. ALBUTEROL SULFATE [Suspect]
     Indication: ASTHMA
     Dosage: 1 VIAL VIA NEBULIZER
     Dates: end: 20110416
  3. ZOLOFT [Suspect]
     Indication: DEPRESSION
     Dosage: 2.5 DF, QD
     Route: 048
     Dates: start: 19950101
  4. DIAZEPAM [Suspect]
     Indication: ANXIETY DISORDER
     Dosage: 5 MG, QID
     Route: 048
     Dates: start: 20100101
  5. CARISOPRODOL [Suspect]
     Indication: MUSCLE RELAXANT THERAPY
     Dosage: 350 MG, QID
     Route: 048
  6. IPRATROPIUM BROMIDE [Suspect]
     Indication: ASTHMA
     Dosage: 1 VIAL NEBULIZER
     Dates: end: 20110416
  7. MULTI-VITAMINS [Suspect]
     Indication: VITAMIN SUPPLEMENTATION
     Dosage: 1 DF, QD
     Route: 048
  8. NAPROXEN [Suspect]
     Indication: ARTHRALGIA
     Dosage: 1 DF, BID
     Route: 048
     Dates: start: 20090101
  9. NEXIUM [Suspect]
     Indication: ABDOMINAL DISCOMFORT
     Dosage: 40 MG, QD
     Route: 048
     Dates: start: 20100101
  10. CALCIUM [Suspect]
     Indication: MINERAL SUPPLEMENTATION
     Dosage: 1 DF, QD
     Route: 048
  11. PERCOCET [Suspect]
     Dosage: 1 DF, BID
     Route: 048
     Dates: start: 19950101
  12. FENTANYL [Suspect]
     Indication: ARTHRALGIA
     Dosage: 1 DF, UNK, 3 DAYS
     Route: 062
     Dates: start: 20110104

REACTIONS (4)
  - PYREXIA [None]
  - PHARYNGITIS STREPTOCOCCAL [None]
  - ABDOMINAL DISCOMFORT [None]
  - HYPERHIDROSIS [None]
